FAERS Safety Report 12997424 (Version 3)
Quarter: 2016Q4

REPORT INFORMATION
  Report Type: Spontaneous
  Country: US (occurrence: US)
  Receive Date: 20161205
  Receipt Date: 20161214
  Transmission Date: 20170207
  Serious: Yes (Death, Hospitalization, Other)
  Sender: FDA-Public Use
  Company Number: US-AUROBINDO-AUR-APL-2016-14818

PATIENT
  Age: 72 Year
  Sex: Female

DRUGS (3)
  1. PREDNISONE. [Suspect]
     Active Substance: PREDNISONE
     Indication: MICROSCOPIC POLYANGIITIS
     Route: 065
  2. PREDNISONE. [Suspect]
     Active Substance: PREDNISONE
     Indication: GLOMERULONEPHRITIS RAPIDLY PROGRESSIVE
  3. RITUXIMAB [Suspect]
     Active Substance: RITUXIMAB
     Indication: MICROSCOPIC POLYANGIITIS
     Route: 065

REACTIONS (10)
  - Acanthamoeba infection [Fatal]
  - Encephalitis [Fatal]
  - Rash erythematous [Unknown]
  - Tenderness [Unknown]
  - Pyrexia [Unknown]
  - Cellulitis [Unknown]
  - Respiratory rate decreased [Unknown]
  - Somnolence [None]
  - Bacteraemia [Unknown]
  - Condition aggravated [Unknown]
